FAERS Safety Report 11283954 (Version 1)
Quarter: 2015Q3

REPORT INFORMATION
  Report Type: Spontaneous
  Country: US (occurrence: US)
  Receive Date: 20150720
  Receipt Date: 20150720
  Transmission Date: 20151125
  Serious: Yes (Hospitalization, Other)
  Sender: FDA-Public Use
  Company Number: US-ASTRAZENECA-2015SE69178

PATIENT
  Age: 64 Year
  Sex: Male
  Weight: 83.9 kg

DRUGS (12)
  1. SYMBICORT [Suspect]
     Active Substance: BUDESONIDE\FORMOTEROL FUMARATE DIHYDRATE
     Indication: CHRONIC OBSTRUCTIVE PULMONARY DISEASE
     Dosage: 80/4.5, 2 PUFFS TWICE DAILY
     Route: 055
  2. CANDESARTAN [Suspect]
     Active Substance: CANDESARTAN
     Indication: CARDIAC DISORDER
     Dosage: 8 MG ONE AND A HALF TABLETS A DAY
     Route: 048
     Dates: start: 201504
  3. WARFARIN [Concomitant]
     Active Substance: WARFARIN
     Indication: COAGULOPATHY
     Dosage: ONE AND HALF ONCE A DAY AT NIGHT
     Route: 048
     Dates: start: 201504
  4. GAPAPENTIN [Concomitant]
     Indication: PARAPARESIS
     Route: 048
     Dates: start: 2011
  5. SYMBICORT [Suspect]
     Active Substance: BUDESONIDE\FORMOTEROL FUMARATE DIHYDRATE
     Indication: BRONCHITIS CHRONIC
     Dosage: 80/4.5, 2 PUFFS TWICE DAILY
     Route: 055
  6. METOPROLOL SUCCINATE. [Suspect]
     Active Substance: METOPROLOL SUCCINATE
     Indication: CARDIAC DISORDER
     Route: 048
     Dates: start: 201504
  7. DEXILANT [Concomitant]
     Active Substance: DEXLANSOPRAZOLE
     Indication: GASTRIC DISORDER
     Route: 048
     Dates: start: 2013
  8. SERTRALINE [Concomitant]
     Active Substance: SERTRALINE HYDROCHLORIDE
     Indication: PROPHYLAXIS
     Route: 048
     Dates: start: 2012
  9. DIAZEPAM. [Concomitant]
     Active Substance: DIAZEPAM
     Indication: MUSCLE RELAXANT THERAPY
     Route: 048
  10. BACLOFEN. [Concomitant]
     Active Substance: BACLOFEN
     Indication: PARAPARESIS
     Route: 048
  11. WARFARIN [Concomitant]
     Active Substance: WARFARIN
     Indication: COAGULOPATHY
     Route: 048
     Dates: start: 201504
  12. METFORMIN [Concomitant]
     Active Substance: METFORMIN HYDROCHLORIDE
     Indication: GLUCOSE TOLERANCE IMPAIRED
     Route: 048
     Dates: start: 2011

REACTIONS (12)
  - Atrial fibrillation [Recovering/Resolving]
  - Asthma [Unknown]
  - Pulmonary embolism [Recovering/Resolving]
  - Rotator cuff syndrome [Unknown]
  - Lung disorder [Unknown]
  - Product use issue [Unknown]
  - Coronary artery embolism [Recovering/Resolving]
  - Bronchitis [Unknown]
  - Pulmonary oedema [Unknown]
  - Dyspnoea [Unknown]
  - Post procedural complication [Unknown]
  - Intentional product misuse [Unknown]

NARRATIVE: CASE EVENT DATE: 2013
